FAERS Safety Report 21557359 (Version 1)
Quarter: 2022Q4

REPORT INFORMATION
  Report Type: Spontaneous
  Country: JP (occurrence: JP)
  Receive Date: 20221105
  Receipt Date: 20221105
  Transmission Date: 20230113
  Serious: Yes (Other)
  Sender: FDA-Public Use
  Company Number: JP-NAPPMUNDI-GBR-2022-0102522

PATIENT
  Age: 74 Year
  Sex: Female

DRUGS (6)
  1. FOLOTYN [Suspect]
     Active Substance: PRALATREXATE
     Indication: Angioimmunoblastic T-cell lymphoma
     Dosage: UNK
     Route: 042
  2. FLUDARABINE [Concomitant]
     Active Substance: FLUDARABINE PHOSPHATE
     Indication: Product used for unknown indication
     Dosage: 180 MILLIGRAM/SQ. METER
     Route: 065
  3. BUSULFAN [Concomitant]
     Active Substance: BUSULFAN
     Indication: Product used for unknown indication
     Dosage: 6.4 MILLIGRAM/KILOGRAM
     Route: 065
  4. METHYLPREDNISOLONE [Concomitant]
     Active Substance: METHYLPREDNISOLONE
     Indication: Graft versus host disease
     Dosage: 2 MILLIGRAM/KILOGRAM
     Route: 065
  5. RITUXIMAB [Concomitant]
     Active Substance: RITUXIMAB
     Indication: Product used for unknown indication
     Dosage: UNK
     Route: 065
  6. CISPLATIN;DEXAMETHASONE;GEMCITABINE;RITUXIMAB [Concomitant]
     Indication: Product used for unknown indication
     Dosage: UNK
     Route: 065

REACTIONS (1)
  - Composite lymphoma [Recovering/Resolving]
